FAERS Safety Report 4265892-8 (Version None)
Quarter: 2004Q1

REPORT INFORMATION
  Report Type: 
  Country: None (occurrence: None)
  Receive Date: 20040106
  Receipt Date: 20031224
  Transmission Date: 20041129
  Serious: Yes (Hospitalization)
  Sender: FDA-Public Use
  Company Number: US-JNJFOC-20031205294

PATIENT
  Age: 60 Year
  Sex: Female

DRUGS (7)
  1. INFLIXIMAB (INFLIXIMAB, RECOMBINANT) LYOPHILIZED POWDER [Suspect]
     Indication: RHEUMATOID ARTHRITIS
     Dosage: INTRAVENOUS; INTRAVENOUS
     Route: 042
     Dates: start: 20000919
  2. INFLIXIMAB (INFLIXIMAB, RECOMBINANT) LYOPHILIZED POWDER [Suspect]
     Indication: RHEUMATOID ARTHRITIS
     Dosage: INTRAVENOUS; INTRAVENOUS
     Route: 042
     Dates: start: 20030523
  3. CLIMARA [Concomitant]
  4. OMEPRAZOLE [Concomitant]
  5. VIOXX [Concomitant]
  6. SEREVENT [Concomitant]
  7. FLOVENT [Concomitant]

REACTIONS (5)
  - AORTIC ATHEROSCLEROSIS [None]
  - LOBAR PNEUMONIA [None]
  - OEDEMA PERIPHERAL [None]
  - PLEURAL EFFUSION [None]
  - SEPSIS SYNDROME [None]
